FAERS Safety Report 6375826-8 (Version None)
Quarter: 2009Q3

REPORT INFORMATION
  Report Type: 
  Country: None (occurrence: None)
  Receive Date: 20090924
  Receipt Date: 20090914
  Transmission Date: 20100115
  Serious: Yes (Hospitalization, Congenital Anomaly, Other)
  Sender: FDA-Public Use
  Company Number: TR-ELI_LILLY_AND_COMPANY-TR200909002886

PATIENT
  Sex: Female

DRUGS (4)
  1. HUMULIN R [Suspect]
     Indication: GESTATIONAL DIABETES
     Dosage: 22 IU, DAILY (1/D)
     Route: 064
     Dates: start: 20090701, end: 20090821
  2. EUTHROID-1 [Concomitant]
     Dosage: UNK, DAILY (1/D)
     Route: 064
  3. VITAMINS [Concomitant]
     Dosage: UNK, DAILY (1/D)
     Route: 064
  4. IRON [Concomitant]
     Dosage: UNK, DAILY (1/D)
     Route: 064

REACTIONS (4)
  - CONGENITAL OESOPHAGEAL ANOMALY [None]
  - CONGENITAL URETHRAL ANOMALY [None]
  - DRUG EXPOSURE DURING PREGNANCY [None]
  - PREMATURE BABY [None]
